FAERS Safety Report 5209072-8 (Version None)
Quarter: 2007Q1

REPORT INFORMATION
  Report Type: 
  Country: None (occurrence: None)
  Receive Date: 20070116
  Receipt Date: 20070111
  Transmission Date: 20070707
  Serious: Yes (Life-Threatening, Hospitalization)
  Sender: FDA-Public Use
  Company Number: 2007PK00048

PATIENT
  Age: 72 Year
  Sex: Male

DRUGS (10)
  1. SEROQUEL [Suspect]
     Indication: SCHIZOPHRENIA, PARANOID TYPE
     Route: 048
     Dates: end: 20061129
  2. MEROPENEM [Suspect]
     Indication: PNEUMONIA BACTERIAL
     Route: 048
     Dates: start: 20061027, end: 20061108
  3. TAZOBAC [Suspect]
     Indication: RESPIRATORY TRACT INFECTION
     Route: 048
     Dates: start: 20061006, end: 20061019
  4. CIPROFLOXACIN HYDROCHLORIDE [Suspect]
     Indication: OSTEOMYELITIS
     Route: 048
     Dates: start: 20061108, end: 20061129
  5. MARCUMAR [Suspect]
     Indication: PERIPHERAL VASCULAR DISORDER
     Route: 048
     Dates: start: 20061114, end: 20061128
  6. CORDARONE [Concomitant]
     Indication: TACHYCARDIA PAROXYSMAL
     Route: 048
     Dates: end: 20061128
  7. TRIATEC [Concomitant]
     Indication: LEFT VENTRICULAR FAILURE
     Route: 048
     Dates: end: 20061201
  8. NITRODERM [Concomitant]
     Indication: LEFT VENTRICULAR FAILURE
     Route: 062
  9. LIQUAEMIN INJ [Concomitant]
     Indication: PERIPHERAL VASCULAR DISORDER
     Route: 042
     Dates: start: 20061114
  10. ATORVASTATIN CALCIUM [Concomitant]
     Indication: HYPERLIPIDAEMIA
     Route: 048
     Dates: end: 20061208

REACTIONS (2)
  - HEPATITIS CHOLESTATIC [None]
  - JAUNDICE CHOLESTATIC [None]
